APPROVED DRUG PRODUCT: BUPROPION HYDROCHLORIDE
Active Ingredient: BUPROPION HYDROCHLORIDE
Strength: 75MG
Dosage Form/Route: TABLET;ORAL
Application: A207389 | Product #001
Applicant: INVAGEN PHARMACEUTICALS INC
Approved: Sep 18, 2017 | RLD: No | RS: No | Type: DISCN